FAERS Safety Report 25665714 (Version 1)
Quarter: 2025Q3

REPORT INFORMATION
  Report Type: Spontaneous
  Country: JP (occurrence: JP)
  Receive Date: 20250811
  Receipt Date: 20250811
  Transmission Date: 20251020
  Serious: Yes (Death)
  Sender: TAIHO ONCOLOGY INC
  Company Number: JP-TAIHOP-2025-006654

PATIENT
  Age: 7 Decade
  Sex: Male

DRUGS (1)
  1. LONSURF [Suspect]
     Active Substance: TIPIRACIL HYDROCHLORIDE\TRIFLURIDINE
     Indication: Gastric cancer
     Route: 048

REACTIONS (1)
  - Disease progression [Fatal]
